FAERS Safety Report 16957749 (Version 1)
Quarter: 2019Q4

REPORT INFORMATION
  Report Type: Spontaneous
  Country: FR (occurrence: FR)
  Receive Date: 20191024
  Receipt Date: 20191024
  Transmission Date: 20200122
  Serious: Yes (Other)
  Sender: FDA-Public Use
  Company Number: FR-JNJFOC-20191032217

PATIENT
  Age: 72 Year
  Sex: Female

DRUGS (2)
  1. RIVAROXABAN [Suspect]
     Active Substance: RIVAROXABAN
     Indication: CARDIAC FIBRILLATION
     Dosage: 20 MG, QD
     Route: 048
  2. FLECAINE [Concomitant]
     Active Substance: FLECAINIDE
     Dosage: UNK

REACTIONS (7)
  - Arrhythmia [Unknown]
  - Asthenia [Unknown]
  - Nausea [Unknown]
  - Malaise [Unknown]
  - Fatigue [Unknown]
  - Vertigo [Unknown]
  - Hepatic enzyme increased [Unknown]
